FAERS Safety Report 7945628-7 (Version None)
Quarter: 2011Q4

REPORT INFORMATION
  Report Type: 
  Country: None (occurrence: None)
  Receive Date: 20111121
  Receipt Date: 20111111
  Transmission Date: 20120403
  Serious: Yes (Other)
  Sender: FDA-Public Use
  Company Number: 2011SP052928

PATIENT
  Sex: Female

DRUGS (3)
  1. PEGATRON (PEGYLATED INTERFERON ALFA-2B W/RIBAVIRIN) [Suspect]
     Indication: HEPATITIS C
     Dates: start: 20110712
  2. METHOTREXATE [Suspect]
     Indication: PRODUCT USED FOR UNKNOWN INDICATION
  3. PLAQUENIL [Suspect]
     Indication: PRODUCT USED FOR UNKNOWN INDICATION

REACTIONS (10)
  - SLEEP DISORDER [None]
  - LIP DRY [None]
  - LETHARGY [None]
  - RHEUMATOID ARTHRITIS [None]
  - FATIGUE [None]
  - INFLUENZA LIKE ILLNESS [None]
  - NAUSEA [None]
  - CONDITION AGGRAVATED [None]
  - INHIBITORY DRUG INTERACTION [None]
  - DRY MOUTH [None]
